FAERS Safety Report 9618070 (Version 1)
Quarter: 2013Q4

REPORT INFORMATION
  Report Type: Report from Study
  Country: CA (occurrence: CA)
  Receive Date: 20131012
  Receipt Date: 20131012
  Transmission Date: 20140711
  Serious: Yes (Death)
  Sender: FDA-Public Use
  Company Number: CA-ROCHE-1287803

PATIENT
  Sex: Male
  Weight: 108.4 kg

DRUGS (21)
  1. RITUXAN [Suspect]
     Indication: IMMUNOGLOBULIN G4 RELATED SCLEROSING DISEASE
     Route: 042
     Dates: start: 20131004, end: 20131004
  2. ACTONEL [Concomitant]
  3. AMIODARONE [Concomitant]
  4. AVELOX [Concomitant]
  5. BISOPROLOL [Concomitant]
  6. CRESTOR [Concomitant]
  7. LASIX [Concomitant]
  8. HUMALOG MIX25 [Concomitant]
  9. NASONEX [Concomitant]
  10. NITROLINGUAL [Concomitant]
  11. RAMIPRIL [Concomitant]
  12. PANTOLOC [Concomitant]
  13. VITAMIN C [Concomitant]
  14. VITAMIN B12 [Concomitant]
  15. SYMBICORT [Concomitant]
  16. TAMOXIFEN [Concomitant]
  17. WARFARIN [Concomitant]
  18. VENTOLIN [Concomitant]
  19. GLUCOSAMINE SULFATE [Concomitant]
  20. CHONDROITIN [Concomitant]
  21. PREDNISONE [Concomitant]

REACTIONS (2)
  - Arrhythmia [Fatal]
  - Off label use [Unknown]
